FAERS Safety Report 8579234-0 (Version None)
Quarter: 2012Q3

REPORT INFORMATION
  Report Type: 
  Country: None (occurrence: None)
  Receive Date: 20120808
  Receipt Date: 20120802
  Transmission Date: 20120928
  Serious: Yes (Hospitalization)
  Sender: FDA-Public Use
  Company Number: US-ROCHE-1096572

PATIENT
  Sex: Female
  Weight: 48.53 kg

DRUGS (15)
  1. PACLITAXEL [Suspect]
     Indication: NON-SMALL CELL LUNG CANCER
     Route: 042
     Dates: start: 20120309
  2. COMPAZINE [Concomitant]
     Indication: NAUSEA
     Dates: start: 20120310
  3. MAGNESIUM [Concomitant]
     Indication: HYPOMAGNESAEMIA
     Dates: start: 20120329
  4. AVASTIN [Suspect]
     Indication: NON-SMALL CELL LUNG CANCER
     Route: 042
     Dates: start: 20120309, end: 20120329
  5. ALBUTEROL [Concomitant]
     Indication: ASTHMA
  6. COMBIVENT [Concomitant]
     Indication: ASTHMA
  7. VITAMIN B-12 [Concomitant]
     Dates: start: 20120227
  8. COZAAR [Concomitant]
     Indication: HYPERTENSION
     Dates: start: 20110201
  9. FLUTICASONE PROPIONATE [Concomitant]
     Indication: ASTHMA
  10. COMPAZINE [Concomitant]
     Indication: VOMITING
  11. AVASTIN [Suspect]
     Route: 042
     Dates: start: 20120510
  12. CARBOPLATIN [Suspect]
     Indication: NON-SMALL CELL LUNG CANCER
     Dosage: 6 AUC
     Route: 042
     Dates: start: 20120309, end: 20120329
  13. CARBOPLATIN [Suspect]
     Dosage: 6 AUC
     Route: 042
     Dates: start: 20120510
  14. FOLIC ACID [Concomitant]
     Dates: start: 20120227
  15. LEVEMIR [Concomitant]
     Indication: DIABETES MELLITUS

REACTIONS (1)
  - AUTONOMIC NERVOUS SYSTEM IMBALANCE [None]
